FAERS Safety Report 9226866 (Version 1)
Quarter: 2013Q2

REPORT INFORMATION
  Report Type: Spontaneous
  Country: US (occurrence: None)
  Receive Date: 20130410
  Receipt Date: 20130410
  Transmission Date: 20140414
  Serious: Yes (Other)
  Sender: FDA-Public Use
  Company Number: 1660188

PATIENT
  Age: 50 Year
  Sex: Male

DRUGS (2)
  1. GEMCITABINE HYDROCHLORIDE [Suspect]
     Indication: GALLBLADDER ADENOCARCINOMA
  2. CISPLATIN [Suspect]
     Indication: GALLBLADDER ADENOCARCINOMA

REACTIONS (14)
  - Leukocytosis [None]
  - Blood alkaline phosphatase increased [None]
  - Dehydration [None]
  - Cholestasis [None]
  - Ascites [None]
  - Coronary artery disease [None]
  - Electrocardiogram ST segment elevation [None]
  - Blood creatinine increased [None]
  - Hyperkalaemia [None]
  - Hyperphosphataemia [None]
  - Renal failure acute [None]
  - Urosepsis [None]
  - Deep vein thrombosis [None]
  - Pulmonary embolism [None]
